FAERS Safety Report 9280436 (Version 1)
Quarter: 2013Q2

REPORT INFORMATION
  Report Type: Spontaneous
  Country: US (occurrence: US)
  Receive Date: 20130509
  Receipt Date: 20130509
  Transmission Date: 20140414
  Serious: Yes (Other)
  Sender: FDA-Public Use
  Company Number: PHHY2013US044559

PATIENT
  Age: 20 Year
  Sex: Female

DRUGS (5)
  1. NORTRIPTYLINE [Suspect]
     Dosage: 10 MG, DAILY WITH A PLAN TO INCREASE BY 10 MG EVERY 5 DAYS TO AS HIGH AS 100 TO 150 MG DAILY
     Route: 048
  2. NORTRIPTYLINE [Suspect]
     Dosage: 30 MG, DAILY
     Route: 048
  3. NORTRIPTYLINE [Suspect]
     Dosage: 40 MG, DAILY
     Route: 048
  4. NORTRIPTYLINE [Suspect]
     Dosage: 50 MG, DAILY
     Route: 048
  5. NORTRIPTYLINE [Suspect]
     Dosage: 20 MG, DAILY
     Route: 048

REACTIONS (10)
  - Drug eruption [Recovered/Resolved]
  - Pityriasis rosea [Recovered/Resolved]
  - Papule [Recovered/Resolved]
  - Rash pruritic [Recovered/Resolved]
  - Skin plaque [Recovered/Resolved]
  - Rash [Recovered/Resolved]
  - Erythema [Recovered/Resolved]
  - Vulvovaginal mycotic infection [Recovered/Resolved]
  - Vulvovaginal discomfort [Recovered/Resolved]
  - Photosensitivity reaction [Recovered/Resolved]
